FAERS Safety Report 4573503-7 (Version None)
Quarter: 2005Q1

REPORT INFORMATION
  Report Type: 
  Country: None (occurrence: None)
  Receive Date: 20050208
  Receipt Date: 20040901
  Transmission Date: 20050727
  Serious: Yes (Hospitalization)
  Sender: FDA-Public Use
  Company Number: SUS1-2004-00497

PATIENT
  Age: 30 Year
  Sex: Female

DRUGS (2)
  1. PAXIL [Suspect]
     Indication: DEPRESSION
     Dosage: 20MG PER DAY
     Route: 048
     Dates: start: 20020620, end: 20040101
  2. ADDERALL XR 25 [Suspect]
     Indication: ATTENTION DEFICIT/HYPERACTIVITY DISORDER
     Dosage: 30MG PER DAY
     Route: 048
     Dates: start: 20020926, end: 20040101

REACTIONS (6)
  - ABNORMAL BEHAVIOUR [None]
  - DELUSION [None]
  - HALLUCINATION, AUDITORY [None]
  - MANIA [None]
  - PSYCHOTIC DISORDER [None]
  - REFUSAL OF TREATMENT BY PATIENT [None]
